FAERS Safety Report 18706574 (Version 2)
Quarter: 2021Q1

REPORT INFORMATION
  Report Type: Spontaneous
  Country: US (occurrence: US)
  Receive Date: 20210106
  Receipt Date: 20210111
  Transmission Date: 20210419
  Serious: No
  Sender: FDA-Public Use
  Company Number: US-PFIZER INC-2020069652

PATIENT
  Age: 34 Year
  Sex: Female
  Weight: 52.62 kg

DRUGS (4)
  1. RAPAMUNE [Suspect]
     Active Substance: SIROLIMUS
     Dosage: UNK (1/2MG DRINK A WATER EVERY DAY)
  2. BACTRIM [Concomitant]
     Active Substance: SULFAMETHOXAZOLE\TRIMETHOPRIM
     Dosage: UNK
  3. RAPAMUNE [Suspect]
     Active Substance: SIROLIMUS
     Indication: CONGENITAL ANOMALY
     Dosage: 2 MG, 1X/DAY
     Route: 048
  4. RAPAMUNE [Suspect]
     Active Substance: SIROLIMUS
     Indication: MALFORMATION VENOUS
     Dosage: 1 MG, 1X/DAY
     Route: 048
     Dates: start: 20190611

REACTIONS (2)
  - Body height decreased [Unknown]
  - Off label use [Unknown]

NARRATIVE: CASE EVENT DATE: 20190611
